FAERS Safety Report 9748753 (Version 4)
Quarter: 2014Q4

REPORT INFORMATION
  Report Type: Spontaneous
  Country: JP (occurrence: JP)
  Receive Date: 20131212
  Receipt Date: 20141230
  Transmission Date: 20150529
  Serious: Yes (Death, Life-Threatening, Hospitalization, Other)
  Sender: FDA-Public Use
  Company Number: JP-ALEXION PHARMACEUTICALS INC.-A201304071

PATIENT

DRUGS (6)
  1. ZOSYN [Concomitant]
     Active Substance: PIPERACILLIN SODIUM\TAZOBACTAM SODIUM
     Indication: INFECTION
     Dosage: 2025 MG, QD
     Route: 042
     Dates: start: 20131122, end: 20131215
  2. VANCOMYCIN [Concomitant]
     Active Substance: VANCOMYCIN
     Indication: INFECTION
     Dosage: 300 MG, QD
     Route: 042
     Dates: start: 20131028, end: 20131215
  3. SOLIRIS [Suspect]
     Active Substance: ECULIZUMAB
     Dosage: 600 MG, Q2W
     Route: 042
     Dates: start: 20131213, end: 20131213
  4. MEROPEN                            /01250501/ [Concomitant]
     Active Substance: MEROPENEM
     Indication: INFECTION
     Dosage: 600 MG, QD
     Route: 042
     Dates: start: 20131025, end: 20131122
  5. GENTACIN [Concomitant]
     Active Substance: GENTAMICIN SULFATE
     Indication: INFECTION
     Dosage: 20 MG, QD
     Route: 042
     Dates: start: 20131201, end: 20131215
  6. SOLIRIS [Suspect]
     Active Substance: ECULIZUMAB
     Indication: HAEMOLYTIC URAEMIC SYNDROME
     Dosage: 600 MG, QW
     Route: 042
     Dates: start: 20131030, end: 20131106

REACTIONS (8)
  - Asphyxia [Recovering/Resolving]
  - Bacteraemia [Recovering/Resolving]
  - Pneumonia [Fatal]
  - Leukopenia [Fatal]
  - White blood cell count decreased [Fatal]
  - Adenovirus infection [Fatal]
  - Bacteraemia [Recovered/Resolved]
  - Renal impairment [Fatal]

NARRATIVE: CASE EVENT DATE: 20131014
